FAERS Safety Report 15715697 (Version 1)
Quarter: 2018Q4

REPORT INFORMATION
  Report Type: Spontaneous
  Country: DE (occurrence: DE)
  Receive Date: 20181212
  Receipt Date: 20181212
  Transmission Date: 20190205
  Serious: Yes (Hospitalization)
  Sender: FDA-Public Use
  Company Number: DE-MYLANLABS-2018M1092089

PATIENT
  Age: 58 Year
  Sex: Male

DRUGS (8)
  1. MELPERON [Concomitant]
     Active Substance: MELPERONE
     Dosage: 100 MILLIGRAM, QD (EINNAHME SEIT CA. 1 JAHR)
     Route: 048
  2. MILNACIPRAN [Concomitant]
     Active Substance: MILNACIPRAN
     Dosage: 100 MILLIGRAM, QD
     Route: 048
     Dates: start: 201712, end: 20180322
  3. RAMIPRIL. [Concomitant]
     Active Substance: RAMIPRIL
     Dosage: 5 MILLIGRAM, QD (EINNAHME SEIT JAHREN)
     Route: 048
  4. PANTOPRAZOL                        /01263201/ [Concomitant]
     Active Substance: PANTOPRAZOLE
     Dosage: 20 MILLIGRAM, QD (EINNAHME SEIT MONATEN)
     Route: 048
  5. SALBUTAMOL [Concomitant]
     Active Substance: ALBUTEROL
     Dosage: 100 MICROGRAM, QD (EINNAHME SEIT JAHREN)
     Route: 048
  6. L-THYROXIN                         /00068002/ [Concomitant]
     Active Substance: LEVOTHYROXINE SODIUM
     Dosage: 50 MICROGRAM, QD (EINNAHME SEIT JAHREN)
     Route: 048
  7. FUROSEMID                          /00032601/ [Concomitant]
     Active Substance: FUROSEMIDE
     Dosage: 40 MILLIGRAM, QD (EINNAHME SEIT MONATEN)
     Route: 048
  8. MIRTAZAPINE. [Suspect]
     Active Substance: MIRTAZAPINE
     Indication: PRODUCT USED FOR UNKNOWN INDICATION
     Dosage: 15 MILLIGRAM, QD
     Route: 048
     Dates: start: 20180227, end: 20180313

REACTIONS (2)
  - Nightmare [Unknown]
  - Alcoholism [Recovered/Resolved]

NARRATIVE: CASE EVENT DATE: 20180306
